FAERS Safety Report 9470659 (Version 2)
Quarter: 2013Q4

REPORT INFORMATION
  Report Type: Report from Study
  Country: CA (occurrence: CA)
  Receive Date: 20130822
  Receipt Date: 20131126
  Transmission Date: 20140711
  Serious: Yes (Other)
  Sender: FDA-Public Use
  Company Number: CA-SANOFI-AVENTIS-2013SA083740

PATIENT
  Age: 72 Year
  Sex: 0

DRUGS (4)
  1. ELOXATIN [Suspect]
     Indication: COLORECTAL CANCER
     Route: 065
     Dates: start: 201001, end: 201203
  2. AVASTIN [Suspect]
     Indication: COLORECTAL CANCER
     Dosage: SOLUTION INTRAVENOUS
     Dates: start: 201001, end: 201203
  3. FLUOROURACIL [Suspect]
     Indication: COLORECTAL CANCER
     Route: 065
     Dates: start: 201001, end: 201203
  4. LEUCOVORIN [Suspect]
     Indication: COLORECTAL CANCER
     Route: 065
     Dates: start: 201001, end: 201203

REACTIONS (3)
  - Toxicity to various agents [Unknown]
  - Disease progression [Unknown]
  - Unevaluable event [Unknown]
